FAERS Safety Report 9708729 (Version 3)
Quarter: 2015Q1

REPORT INFORMATION
  Report Type: Spontaneous
  Country: US (occurrence: US)
  Receive Date: 20131125
  Receipt Date: 20150323
  Transmission Date: 20150721
  Serious: Yes (Hospitalization, Other)
  Sender: FDA-Public Use
  Company Number: US-GLAXOSMITHKLINE-A1051104A

PATIENT
  Age: 31 Year
  Sex: Female

DRUGS (3)
  1. FLOLAN [Suspect]
     Active Substance: EPOPROSTENOL SODIUM
     Indication: COR PULMONALE CHRONIC
     Dosage: DOSE: 37 NG/KG/MINCONCENTRATION: 45,000 NG/MLPUMP RATE: 86 ML/DAYVIAL STRENGTH: 1.5 MG
     Route: 042
     Dates: start: 20080903
  2. REVATIO [Concomitant]
     Active Substance: SILDENAFIL CITRATE
  3. FLOLAN [Suspect]
     Active Substance: EPOPROSTENOL SODIUM
     Dosage: 44 UNK, UNK

REACTIONS (3)
  - Staphylococcal infection [Recovered/Resolved]
  - Central venous catheterisation [Recovered/Resolved]
  - Fluid retention [Unknown]

NARRATIVE: CASE EVENT DATE: 20131109
